FAERS Safety Report 21630396 (Version 1)
Quarter: 2022Q4

REPORT INFORMATION
  Report Type: Spontaneous
  Country: US (occurrence: US)
  Receive Date: 20221122
  Receipt Date: 20221122
  Transmission Date: 20230113
  Serious: Yes (Other)
  Sender: FDA-Public Use
  Company Number: US-COLLEGIUM PHARMACEUTICAL, INC.-20221100443

PATIENT

DRUGS (2)
  1. XTAMPZA ER [Suspect]
     Active Substance: OXYCODONE
     Indication: Cancer pain
     Dosage: 18 MILLIGRAM, BID
     Route: 048
     Dates: start: 20221112
  2. XTAMPZA ER [Suspect]
     Active Substance: OXYCODONE
     Indication: Neuromuscular pain

REACTIONS (2)
  - Hallucination, visual [Unknown]
  - Pruritus [Not Recovered/Not Resolved]

NARRATIVE: CASE EVENT DATE: 20221101
